FAERS Safety Report 11306070 (Version 3)
Quarter: 2015Q3

REPORT INFORMATION
  Report Type: Report from Study
  Country: US (occurrence: US)
  Receive Date: 20150723
  Receipt Date: 20150731
  Transmission Date: 20151125
  Serious: Yes (Death, Other)
  Sender: FDA-Public Use
  Company Number: US-PFIZER INC-MER2015178231

PATIENT
  Age: 43 Year
  Sex: Male
  Weight: 96 kg

DRUGS (5)
  1. INSULIN LISPRO [Concomitant]
     Active Substance: INSULIN LISPRO
     Indication: DIABETES MELLITUS
     Dosage: 1 UNIT/70
     Route: 058
     Dates: start: 19980601
  2. LISINOPRIL. [Suspect]
     Active Substance: LISINOPRIL
     Indication: HYPERTENSION
     Dosage: 20 MG, WEEKLY
     Route: 048
     Dates: start: 19901201
  3. HYDROCODONE [Concomitant]
     Active Substance: HYDROCODONE
     Indication: ABDOMINAL PAIN
     Dosage: 10/325 MG, AS NEEDED
     Route: 048
     Dates: start: 20140701
  4. MSB0010718C [Suspect]
     Active Substance: AVELUMAB
     Indication: COLORECTAL CANCER METASTATIC
     Dosage: 967 MG, EVERY 2 WEEKS
     Route: 042
     Dates: start: 20140806, end: 20140806
  5. ADVIL [Suspect]
     Active Substance: IBUPROFEN
     Indication: ABDOMINAL PAIN
     Dosage: 200 MG, AS NEEDED
     Route: 048
     Dates: start: 20130901

REACTIONS (2)
  - Hepatic failure [Fatal]
  - Acute kidney injury [Not Recovered/Not Resolved]

NARRATIVE: CASE EVENT DATE: 20140828
